FAERS Safety Report 9030232 (Version 3)
Quarter: 2016Q1

REPORT INFORMATION
  Report Type: Spontaneous
  Country: US (occurrence: US)
  Receive Date: 20130122
  Receipt Date: 20160229
  Transmission Date: 20160526
  Serious: Yes (Other)
  Sender: FDA-Public Use
  Company Number: US-BAYER-2013-006088

PATIENT
  Age: 35 Year
  Sex: Female

DRUGS (1)
  1. MIRENA [Suspect]
     Active Substance: LEVONORGESTREL
     Indication: CONTRACEPTION
     Dosage: 20 MCG/24HR, CONT
     Route: 015
     Dates: start: 20091123, end: 20120105

REACTIONS (7)
  - Fear [None]
  - Dysmenorrhoea [None]
  - Device issue [Recovered/Resolved]
  - Anxiety [None]
  - Abdominal pain lower [Recovered/Resolved]
  - Uterine perforation [Recovered/Resolved]
  - Abdominal adhesions [None]

NARRATIVE: CASE EVENT DATE: 201111
